FAERS Safety Report 8455060-8 (Version None)
Quarter: 2012Q2

REPORT INFORMATION
  Report Type: 
  Country: None (occurrence: None)
  Receive Date: 20120621
  Receipt Date: 20120618
  Transmission Date: 20120825
  Serious: No
  Sender: FDA-Public Use
  Company Number: US-BAYER-2012-038996

PATIENT
  Sex: Female

DRUGS (2)
  1. BEYAZ [Suspect]
     Dosage: UNK
     Dates: start: 20120201
  2. BEYAZ [Suspect]
     Dosage: UNK
     Dates: end: 20110101

REACTIONS (4)
  - EMOTIONAL DISORDER [None]
  - NO ADVERSE EVENT [None]
  - WEIGHT INCREASED [None]
  - METRORRHAGIA [None]
